FAERS Safety Report 9607464 (Version 1)
Quarter: 2013Q4

REPORT INFORMATION
  Report Type: Spontaneous
  Country: ER (occurrence: None)
  Receive Date: 20131004
  Receipt Date: 20131004
  Transmission Date: 20140711
  Serious: Yes (Life-Threatening, Hospitalization, Other)
  Sender: FDA-Public Use
  Company Number: CO-OR-IE-2013-099

PATIENT
  Age: 33 Year
  Sex: Male

DRUGS (4)
  1. PREDNISOLONE [Suspect]
     Indication: BEHCET^S SYNDROME
  2. AZATHIOPRINE [Suspect]
     Indication: BEHCET^S SYNDROME
  3. WARFARIN [Suspect]
     Indication: DEEP VEIN THROMBOSIS
  4. CO-AMOXICLAV [Concomitant]

REACTIONS (3)
  - Haemoptysis [None]
  - Chest pain [None]
  - Pneumonia pneumococcal [None]
